FAERS Safety Report 8669755 (Version 2)
Quarter: 2012Q4

REPORT INFORMATION
  Report Type: 
  Country: CA (occurrence: CA)
  Receive Date: 20120718
  Receipt Date: 20120924
  Transmission Date: 20130627
  Serious: Yes (Hospitalization)
  Sender: FDA-Public Use
  Company Number: CA-ELI_LILLY_AND_COMPANY-CA201207003405

PATIENT
  Age: 50 Year
  Sex: Female
  Weight: 73.92 kg

DRUGS (26)
  1. FORTEO [Suspect]
     Indication: OSTEOPOROSIS
     Dosage: 20 ug, qd
     Route: 058
     Dates: start: 20110520
  2. CELLCEPT [Concomitant]
  3. PREDNISONE [Concomitant]
  4. NEORAL [Concomitant]
  5. NYSTATIN [Concomitant]
  6. STEMETIL [Concomitant]
     Dosage: UNK, prn
  7. CALCITONIN [Concomitant]
  8. CALCIUM [Concomitant]
  9. D-TABS [Concomitant]
  10. LASIX                              /00032601/ [Concomitant]
  11. NADOLOL [Concomitant]
  12. NORVASC [Concomitant]
  13. PANTOLOC                           /01263204/ [Concomitant]
  14. LOPERAMIDE [Concomitant]
  15. TYLENOL /00020001/ [Concomitant]
     Dosage: UNK, prn
  16. ASPIRIN [Concomitant]
  17. FENTANYL [Concomitant]
  18. MORPHINE [Concomitant]
  19. VENTOLIN                                /SCH/ [Concomitant]
     Dosage: UNK, prn
  20. FLEXERIL [Concomitant]
  21. IRON [Concomitant]
  22. CORGARD [Concomitant]
  23. ATACAND [Concomitant]
  24. FLONASE [Concomitant]
  25. IMODIUM [Concomitant]
     Dosage: UNK, prn
  26. FLOVENT [Concomitant]
     Dosage: UNK, prn

REACTIONS (2)
  - Road traffic accident [Not Recovered/Not Resolved]
  - Thrombocytopenia [Unknown]
